FAERS Safety Report 7887868-1 (Version None)
Quarter: 2011Q4

REPORT INFORMATION
  Report Type: 
  Country: None (occurrence: None)
  Receive Date: 20111103
  Receipt Date: 20111103
  Transmission Date: 20120403
  Serious: Yes (Hospitalization, Disabling)
  Sender: FDA-Public Use
  Company Number: None

PATIENT
  Age: 79 Year
  Sex: Female
  Weight: 95.254 kg

DRUGS (1)
  1. BONIVA [Suspect]
     Indication: OSTEOARTHRITIS
     Dosage: 1 TABLET

REACTIONS (2)
  - FEMUR FRACTURE [None]
  - FALL [None]
